FAERS Safety Report 5708261-3 (Version None)
Quarter: 2008Q2

REPORT INFORMATION
  Report Type: 
  Country: None (occurrence: None)
  Receive Date: 20080417
  Receipt Date: 20080408
  Transmission Date: 20081010
  Serious: Yes (Hospitalization)
  Sender: FDA-Public Use
  Company Number: US-ROCHE-557570

PATIENT
  Age: 78 Year
  Sex: Female

DRUGS (5)
  1. BONIVA [Suspect]
     Indication: OSTEOPENIA
     Dosage: OTHER INDICATION: HYPERPARATHYROID, STRENGTH: 3MG/3ML
     Route: 042
     Dates: start: 20070301, end: 20070301
  2. CALCIUM [Concomitant]
  3. GLUCOSAMINE [Concomitant]
  4. VITAMIN [Concomitant]
  5. UNKNOWN HYPERTENSION DRUG [Concomitant]
     Indication: HYPERTENSION

REACTIONS (10)
  - ANAEMIA [None]
  - ANAEMIA OF CHRONIC DISEASE [None]
  - ANOREXIA [None]
  - CHONDROCALCINOSIS PYROPHOSPHATE [None]
  - MOBILITY DECREASED [None]
  - NAUSEA [None]
  - POLYMYALGIA RHEUMATICA [None]
  - SYNOVIAL CYST [None]
  - VOMITING [None]
  - WALKING AID USER [None]
